FAERS Safety Report 25942189 (Version 1)
Quarter: 2025Q4

REPORT INFORMATION
  Report Type: Spontaneous
  Country: US (occurrence: US)
  Receive Date: 20251020
  Receipt Date: 20251020
  Transmission Date: 20260117
  Serious: Yes (Other)
  Sender: SANDOZ
  Company Number: US-002147023-NVSC2023US163872

PATIENT
  Sex: Female

DRUGS (10)
  1. AMIKACIN [Suspect]
     Active Substance: AMIKACIN
     Indication: Product used for unknown indication
     Dosage: UNK
     Route: 065
  2. AMIKACIN [Suspect]
     Active Substance: AMIKACIN
     Dosage: UNK (RESTARTED)
     Route: 065
  3. CLOFAZIMINE [Suspect]
     Active Substance: CLOFAZIMINE
     Indication: Product used for unknown indication
     Dosage: UNK
     Route: 065
  4. CLOFAZIMINE [Suspect]
     Active Substance: CLOFAZIMINE
     Dosage: UNK (RESTARTED)
     Route: 065
  5. IMIPENEM [Suspect]
     Active Substance: IMIPENEM
     Indication: Product used for unknown indication
     Dosage: UNK
     Route: 065
  6. IMIPENEM [Suspect]
     Active Substance: IMIPENEM
     Dosage: UNK (RESTARTED)
     Route: 065
  7. ONDANSETRON [Suspect]
     Active Substance: ONDANSETRON
     Indication: Product used for unknown indication
     Dosage: UNK
     Route: 065
  8. ONDANSETRON [Suspect]
     Active Substance: ONDANSETRON
     Dosage: UNK (RESTARTED)
     Route: 065
  9. OMADACYCLINE [Suspect]
     Active Substance: OMADACYCLINE
     Indication: Mycobacterium abscessus infection
     Dosage: 300 MG, QD
     Route: 048
     Dates: start: 20211026
  10. OMADACYCLINE [Suspect]
     Active Substance: OMADACYCLINE
     Dosage: 300 MG, QD
     Route: 048
     Dates: start: 202307

REACTIONS (6)
  - Pathogen resistance [Unknown]
  - Eyelid rash [Unknown]
  - Swelling of eyelid [Recovered/Resolved]
  - Rash erythematous [Recovered/Resolved]
  - Pruritus [Recovered/Resolved]
  - Rash [Unknown]
